FAERS Safety Report 15673002 (Version 9)
Quarter: 2019Q4

REPORT INFORMATION
  Report Type: Report from Study
  Country: US (occurrence: US)
  Receive Date: 20181129
  Receipt Date: 20191209
  Transmission Date: 20200122
  Serious: Yes (Other)
  Sender: FDA-Public Use
  Company Number: US-TESARO-US-2018TSO01320

PATIENT
  Age: 70 Year
  Sex: Female

DRUGS (6)
  1. NIRAPARIB CAPSULE [Suspect]
     Active Substance: NIRAPARIB
     Indication: OVARIAN CANCER
     Dosage: 300 MG, QD
     Route: 048
     Dates: start: 20180223, end: 20190305
  2. NIRAPARIB CAPSULE [Suspect]
     Active Substance: NIRAPARIB
     Indication: METASTASES TO ABDOMINAL CAVITY
     Dosage: 200 MG, QD
     Route: 048
     Dates: start: 20180306, end: 20190318
  3. NIRAPARIB CAPSULE [Suspect]
     Active Substance: NIRAPARIB
     Dosage: 200 MG, QD HS WITHOUT FOOD
     Route: 048
  4. NIRAPARIB CAPSULE [Suspect]
     Active Substance: NIRAPARIB
     Dosage: 200 MG, QD
     Route: 048
     Dates: start: 20190815
  5. NIRAPARIB CAPSULE [Suspect]
     Active Substance: NIRAPARIB
     Dosage: 300 MG, QD AT HS WITHOUT FOOD
     Route: 048
     Dates: start: 20190319, end: 20190630
  6. NIRAPARIB CAPSULE [Suspect]
     Active Substance: NIRAPARIB
     Dosage: 200 MG, QD
     Route: 065
     Dates: start: 20190701, end: 20190717

REACTIONS (18)
  - Insomnia [Unknown]
  - Lymphadenopathy [Unknown]
  - Pelvic mass [Unknown]
  - Nausea [Recovered/Resolved]
  - Skin lesion [Recovered/Resolved]
  - Blood pressure increased [Not Recovered/Not Resolved]
  - Haemoglobin abnormal [Recovering/Resolving]
  - Arthralgia [Unknown]
  - Weight decreased [Unknown]
  - Blood count abnormal [Unknown]
  - Erythema [Unknown]
  - Fatigue [Not Recovered/Not Resolved]
  - Dyspnoea exertional [Not Recovered/Not Resolved]
  - Dyspepsia [Recovered/Resolved]
  - Constipation [Not Recovered/Not Resolved]
  - Haemoglobin decreased [Recovering/Resolving]
  - Hypoacusis [Unknown]
  - Diarrhoea [Not Recovered/Not Resolved]

NARRATIVE: CASE EVENT DATE: 20181018
